FAERS Safety Report 5121825-3 (Version None)
Quarter: 2006Q4

REPORT INFORMATION
  Report Type: 
  Country: None (occurrence: None)
  Receive Date: 20061003
  Receipt Date: 20060929
  Transmission Date: 20070319
  Serious: Yes (Hospitalization)
  Sender: FDA-Public Use
  Company Number: 227692

PATIENT
  Age: 70 Year
  Sex: Male
  Weight: 100 kg

DRUGS (3)
  1. RITUXIMAB(RITUXIMAB) CONC FOR SOLUTION FOR INFUSION [Suspect]
     Indication: CHRONIC LYMPHOCYTIC LEUKAEMIA
     Dosage: 960 MG INTRAVENOUS
     Route: 042
     Dates: start: 20060508, end: 20060508
  2. FLUDARABINE PHOSPHATE [Suspect]
     Indication: CHRONIC LYMPHOCYTIC LEUKAEMIA
     Dosage: 64 MG INTRAVENOUS
     Route: 042
     Dates: start: 20060509, end: 20060511
  3. CYCLOPHOSPHAMIDE [Suspect]
     Indication: CHRONIC LYMPHOCYTIC LEUKAEMIA
     Dosage: 642MG INTRAVENOUS
     Route: 042
     Dates: start: 20060509, end: 20060511

REACTIONS (3)
  - FEBRILE NEUTROPENIA [None]
  - SKIN REACTION [None]
  - SOFT TISSUE NECROSIS [None]
